FAERS Safety Report 10215219 (Version 2)
Quarter: 2014Q2

REPORT INFORMATION
  Report Type: Report from Study
  Country: JP (occurrence: JP)
  Receive Date: 20140603
  Receipt Date: 20140617
  Transmission Date: 20141212
  Serious: Yes (Other)
  Sender: FDA-Public Use
  Company Number: PHHY2014JP066677

PATIENT
  Age: 65 Year
  Sex: Male
  Weight: 41 kg

DRUGS (5)
  1. INDACATEROL [Suspect]
     Indication: CHRONIC OBSTRUCTIVE PULMONARY DISEASE
     Dosage: 150 UG, DAILY
     Route: 055
     Dates: start: 20130419
  2. SPIRIVA [Concomitant]
     Indication: CHRONIC OBSTRUCTIVE PULMONARY DISEASE
     Dosage: 5 UG, UNK
     Route: 055
  3. ALESION [Concomitant]
     Indication: ASTHMA
     Dosage: 20 MG, UNK
     Route: 048
  4. COVERSYL//PERINDOPRIL ARGININE [Concomitant]
     Indication: CARDIAC FAILURE
     Dosage: 40 MG, UNK
     Route: 048
  5. MEPTIN AIR [Concomitant]
     Indication: ASTHMA

REACTIONS (3)
  - Supraventricular extrasystoles [Unknown]
  - Blood pressure decreased [Unknown]
  - Heart rate increased [Unknown]
